FAERS Safety Report 20110856 (Version 1)
Quarter: 2021Q4

REPORT INFORMATION
  Report Type: Spontaneous
  Country: FR (occurrence: FR)
  Receive Date: 20211124
  Receipt Date: 20211124
  Transmission Date: 20220303
  Serious: Yes (Life-Threatening, Other)
  Sender: FDA-Public Use
  Company Number: FR-ABBVIE-21K-056-4175469-00

PATIENT
  Age: 15 Year
  Sex: Male
  Weight: 44 kg

DRUGS (5)
  1. VALPROATE SODIUM [Suspect]
     Active Substance: VALPROATE SODIUM
     Indication: Product used for unknown indication
     Route: 048
     Dates: start: 202003, end: 20200513
  2. FLUOXETINE HYDROCHLORIDE [Interacting]
     Active Substance: FLUOXETINE HYDROCHLORIDE
     Indication: Product used for unknown indication
     Route: 048
     Dates: start: 202003, end: 20200513
  3. TETRABENAZINE [Interacting]
     Active Substance: TETRABENAZINE
     Indication: Dyskinesia
     Route: 048
     Dates: start: 201911, end: 20200513
  4. OMEPRAZOLE [Concomitant]
     Active Substance: OMEPRAZOLE
     Indication: Product used for unknown indication
  5. CLONAZEPAM [Concomitant]
     Active Substance: CLONAZEPAM
     Indication: Product used for unknown indication

REACTIONS (5)
  - Neuroleptic malignant syndrome [Recovered/Resolved]
  - Hepatitis [Recovered/Resolved]
  - Acute hepatic failure [Recovered/Resolved]
  - Pancreatitis [Recovered/Resolved]
  - Drug interaction [Unknown]

NARRATIVE: CASE EVENT DATE: 20200512
